FAERS Safety Report 10014030 (Version 2)
Quarter: 2014Q1

REPORT INFORMATION
  Report Type: Spontaneous
  Country: US (occurrence: US)
  Receive Date: 20140317
  Receipt Date: 20140318
  Transmission Date: 20141002
  Serious: Yes (Hospitalization)
  Sender: FDA-Public Use
  Company Number: US-ROCHE-1365393

PATIENT
  Age: 38 Year
  Sex: Female
  Weight: 172.79 kg

DRUGS (21)
  1. XOLAIR [Suspect]
     Indication: ASTHMA
     Route: 065
  2. XOLAIR [Suspect]
     Indication: ASTHMA
  3. ADVAIR [Concomitant]
     Route: 065
  4. QVAR [Concomitant]
     Dosage: 2 INHALATIONS
     Route: 055
  5. LEVALBUTEROL [Concomitant]
     Route: 065
  6. TESSALON PERLE [Concomitant]
     Route: 065
  7. XANAX [Concomitant]
     Route: 065
  8. FLONASE [Concomitant]
     Route: 065
  9. MUCINEX [Concomitant]
     Route: 065
  10. TUSSIONEX (UNITED STATES) [Concomitant]
     Route: 065
  11. ANUSOL (UNITED STATES) [Concomitant]
     Route: 065
  12. AVALIDE [Concomitant]
     Dosage: 150/12.5
     Route: 065
  13. SYNTHROID [Concomitant]
     Route: 065
  14. CLARITIN [Concomitant]
     Route: 065
  15. SINGULAIR [Concomitant]
     Dosage: AT NIGHT
     Route: 065
  16. MIRALAX [Concomitant]
     Route: 065
  17. THEOPHYLLINE [Concomitant]
     Route: 065
  18. SPIRIVA [Concomitant]
     Dosage: 1 PUFF
     Route: 065
  19. TERBINAFINE [Concomitant]
     Route: 065
  20. PROAIR (UNITED STATES) [Concomitant]
     Route: 065
  21. IPRATROPIUM BROMIDE [Concomitant]
     Dosage: 2 SPRAYS
     Route: 065

REACTIONS (1)
  - Asthma [Not Recovered/Not Resolved]
